FAERS Safety Report 21046403 (Version 1)
Quarter: 2022Q3

REPORT INFORMATION
  Report Type: Spontaneous
  Country: US (occurrence: US)
  Receive Date: 20220706
  Receipt Date: 20220706
  Transmission Date: 20221026
  Serious: No
  Sender: FDA-Public Use
  Company Number: US-ALLERGAN-2216704US

PATIENT
  Age: 24 Year
  Sex: Male

DRUGS (10)
  1. UBRELVY [Suspect]
     Active Substance: UBROGEPANT
     Indication: Migraine
     Dosage: UNK
  2. EMGALITY [Concomitant]
     Active Substance: GALCANEZUMAB-GNLM
     Dosage: INCREASED THE DOSE FROM 1 PENS TO 2 PENS
  3. LORATADINE [Concomitant]
     Active Substance: LORATADINE
  4. FLUTICASONE [Concomitant]
     Active Substance: FLUTICASONE
  5. PROPIONATE [Concomitant]
  6. CLOBETASOL [Concomitant]
     Active Substance: CLOBETASOL
  7. TRIAMCINOLONE [Concomitant]
     Active Substance: TRIAMCINOLONE
  8. DICYCLOMINE HYDROCHLORIDE [Concomitant]
     Active Substance: DICYCLOMINE HYDROCHLORIDE
  9. BUSPIRONE [Concomitant]
     Active Substance: BUSPIRONE HYDROCHLORIDE
  10. IBUPROFEN [Concomitant]
     Active Substance: IBUPROFEN

REACTIONS (1)
  - Drug ineffective [Unknown]
